FAERS Safety Report 15563585 (Version 21)
Quarter: 2019Q4

REPORT INFORMATION
  Report Type: Report from Study
  Country: US (occurrence: US)
  Receive Date: 20181029
  Receipt Date: 20191028
  Transmission Date: 20200122
  Serious: Yes (Other)
  Sender: FDA-Public Use
  Company Number: US-TESARO-2018-TSO1404-US

PATIENT
  Age: 64 Year
  Sex: Female
  Weight: 59 kg

DRUGS (8)
  1. NIRAPARIB [Suspect]
     Active Substance: NIRAPARIB
     Dosage: 200 MG, HS
     Route: 048
     Dates: start: 20190524, end: 20190730
  2. VITAMIN C [Concomitant]
     Active Substance: ASCORBIC ACID
     Indication: PRODUCT USED FOR UNKNOWN INDICATION
  3. BACTRIM [Concomitant]
     Active Substance: SULFAMETHOXAZOLE\TRIMETHOPRIM
     Indication: PRODUCT USED FOR UNKNOWN INDICATION
  4. NIRAPARIB [Suspect]
     Active Substance: NIRAPARIB
     Indication: OVARIAN CANCER
     Dosage: 100 MG, QPM WITHOUT FOOD
     Route: 048
     Dates: start: 20181019
  5. NIRAPARIB [Suspect]
     Active Substance: NIRAPARIB
     Dosage: 200 MG, QD
     Route: 048
     Dates: start: 201811
  6. NIRAPARIB [Suspect]
     Active Substance: NIRAPARIB
     Dosage: 200 MG, HS WITH SNACK
     Route: 048
     Dates: start: 20190814
  7. CYSTEX [Concomitant]
     Active Substance: METHENAMINE\SODIUM SALICYLATE
     Indication: PRODUCT USED FOR UNKNOWN INDICATION
  8. MILK OF MAGNESIA WITH CASANTHRANOL [Concomitant]
     Indication: CONSTIPATION

REACTIONS (41)
  - Malaise [Unknown]
  - Pain in jaw [Unknown]
  - Dry mouth [Unknown]
  - Anaemia [Unknown]
  - Dysgeusia [Unknown]
  - Carbohydrate antigen 125 increased [Not Recovered/Not Resolved]
  - Urine odour abnormal [Unknown]
  - Urinary tract infection [Not Recovered/Not Resolved]
  - Back pain [Not Recovered/Not Resolved]
  - Muscle spasms [Not Recovered/Not Resolved]
  - Disease progression [Unknown]
  - Hepatic enzyme abnormal [Not Recovered/Not Resolved]
  - Abdominal pain upper [Not Recovered/Not Resolved]
  - Myalgia [Unknown]
  - Diarrhoea [Unknown]
  - Faecaloma [Unknown]
  - Flatulence [Not Recovered/Not Resolved]
  - Constipation [Recovering/Resolving]
  - Haemoglobin decreased [Not Recovered/Not Resolved]
  - Dysphagia [Recovering/Resolving]
  - Skin haemorrhage [Unknown]
  - Eructation [Unknown]
  - Dizziness [Unknown]
  - Decreased appetite [Recovering/Resolving]
  - Underdose [Unknown]
  - Neuropathy peripheral [Recovering/Resolving]
  - Alopecia [Unknown]
  - Lymphadenopathy [Unknown]
  - Abdominal pain [Recovering/Resolving]
  - Insomnia [Unknown]
  - Nausea [Not Recovered/Not Resolved]
  - Hypoaesthesia [Recovering/Resolving]
  - Ingrown hair [Unknown]
  - Fatigue [Not Recovered/Not Resolved]
  - Product dose omission [Unknown]
  - Bruxism [Unknown]
  - Gastrointestinal motility disorder [Unknown]
  - Laboratory test abnormal [Unknown]
  - Dyspepsia [Not Recovered/Not Resolved]
  - Dyspnoea [Not Recovered/Not Resolved]
  - Headache [Unknown]

NARRATIVE: CASE EVENT DATE: 20181112
